FAERS Safety Report 9359173 (Version 2)
Quarter: 2013Q3

REPORT INFORMATION
  Report Type: Spontaneous
  Country: CH (occurrence: CH)
  Receive Date: 20130620
  Receipt Date: 20130730
  Transmission Date: 20140515
  Serious: Yes (Death, Other)
  Sender: FDA-Public Use
  Company Number: CH-BAXTER-2013BAX022416

PATIENT
  Sex: Female
  Weight: 58 kg

DRUGS (16)
  1. ENDOXAN 1 G [Suspect]
     Indication: B-CELL LYMPHOMA
     Route: 042
     Dates: start: 20091119
  2. ENDOXAN 1 G [Suspect]
     Route: 042
     Dates: start: 20091209
  3. ENDOXAN 1 G [Suspect]
     Route: 042
     Dates: start: 20091223, end: 20091223
  4. MABTHERA [Suspect]
     Indication: B-CELL LYMPHOMA
     Route: 041
     Dates: start: 20091119, end: 20091223
  5. MABTHERA [Suspect]
     Route: 041
     Dates: start: 20091209
  6. MABTHERA [Suspect]
     Route: 041
     Dates: start: 20091223
  7. ONCOVIN [Suspect]
     Indication: B-CELL LYMPHOMA
     Route: 042
     Dates: start: 20091119
  8. ONCOVIN [Suspect]
     Route: 042
     Dates: start: 20091209
  9. ONCOVIN [Suspect]
     Route: 042
     Dates: start: 20091223, end: 20091223
  10. NEULASTA [Suspect]
     Indication: B-CELL LYMPHOMA
     Route: 058
     Dates: start: 20091119, end: 20091223
  11. NEULASTA [Suspect]
     Route: 058
     Dates: start: 20091209
  12. NEULASTA [Suspect]
     Route: 058
     Dates: start: 20091223, end: 20091223
  13. ADRIBLASTIN [Suspect]
     Indication: B-CELL LYMPHOMA
     Route: 040
     Dates: start: 20091119
  14. ADRIBLASTIN [Suspect]
     Route: 040
     Dates: start: 20091209
  15. ADRIBLASTIN [Suspect]
     Route: 040
     Dates: start: 20091223, end: 20091223
  16. PREDNISONE [Concomitant]
     Indication: PRODUCT USED FOR UNKNOWN INDICATION
     Route: 048

REACTIONS (3)
  - Polyneuropathy [Not Recovered/Not Resolved]
  - Pain in extremity [Not Recovered/Not Resolved]
  - B-cell lymphoma [Fatal]
